FAERS Safety Report 11415591 (Version 7)
Quarter: 2018Q4

REPORT INFORMATION
  Report Type: Spontaneous
  Country: JP (occurrence: JP)
  Receive Date: 20150825
  Receipt Date: 20181207
  Transmission Date: 20190204
  Serious: Yes (Hospitalization, Other)
  Sender: FDA-Public Use
  Company Number: JP-009507513-1508JPN010198

PATIENT
  Age: 78 Year
  Sex: Male
  Weight: 50.5 kg

DRUGS (7)
  1. JANUVIA [Suspect]
     Active Substance: SITAGLIPTIN PHOSPHATE
     Indication: TYPE 2 DIABETES MELLITUS
     Dosage: 50 MILLIGRAM, QD
     Route: 048
     Dates: end: 20150819
  2. PREDNISOLONE. [Suspect]
     Active Substance: PREDNISOLONE
     Dosage: 10 MILLIGRAM, BIM
     Route: 065
     Dates: start: 20150824
  3. MECOBALAMIN [Concomitant]
     Active Substance: METHYLCOBALAMIN
     Indication: NEUROPATHY PERIPHERAL
     Dosage: 500 MILLIGRAM, TID
     Route: 048
  4. PREDNISOLONE. [Suspect]
     Active Substance: PREDNISOLONE
     Indication: SWELLING
     Dosage: 25 MILLIGRAM, BIM
     Route: 065
     Dates: start: 201505
  5. AMLODIPINE [Concomitant]
     Active Substance: AMLODIPINE BESYLATE
     Indication: BLOOD PRESSURE MANAGEMENT
     Dosage: 5 MILLIGRAM, QD
     Route: 048
  6. GLIMEPIRIDE. [Concomitant]
     Active Substance: GLIMEPIRIDE
     Indication: DIABETES MELLITUS MANAGEMENT
     Dosage: 1 MILLIGRAM, QD
     Route: 048
  7. NEUROTROPIN [Concomitant]
     Active Substance: NEUROTROPIN
     Indication: ARTHRALGIA
     Dosage: 4 INTERNATIONAL UNIT, TID
     Route: 048

REACTIONS (2)
  - Seronegative arthritis [Recovering/Resolving]
  - Diabetes mellitus inadequate control [Not Recovered/Not Resolved]

NARRATIVE: CASE EVENT DATE: 201504
